FAERS Safety Report 8282764-2 (Version None)
Quarter: 2012Q2

REPORT INFORMATION
  Report Type: 
  Country: None (occurrence: None)
  Receive Date: 20120413
  Receipt Date: 20120402
  Transmission Date: 20120825
  Serious: Yes (Other)
  Sender: FDA-Public Use
  Company Number: US-ROCHE-1055135

PATIENT
  Sex: Female
  Weight: 59.02 kg

DRUGS (1)
  1. XOLAIR [Suspect]
     Indication: ASTHMA
     Route: 058
     Dates: start: 20110524, end: 20120208

REACTIONS (1)
  - LEUKOCYTOCLASTIC VASCULITIS [None]
